FAERS Safety Report 26200219 (Version 1)
Quarter: 2025Q4

REPORT INFORMATION
  Report Type: Report from Study
  Country: US (occurrence: US)
  Receive Date: 20251225
  Receipt Date: 20251225
  Transmission Date: 20260117
  Serious: Yes (Hospitalization, Other)
  Sender: ROCHE
  Company Number: US-ROCHE-3534542

PATIENT
  Age: 29 Year
  Sex: Female
  Weight: 91.7 kg

DRUGS (10)
  1. ACTEMRA [Suspect]
     Active Substance: TOCILIZUMAB
     Indication: Cyclitis
     Dosage: MORE DOSAGE INFORMATION IS 400 MG SINGLE-USE VIAL?ACTEMRA 400 MG/20 ML (20 MG/ML) ?INTRAVENOUS SOLUTION ?400 MG/20 ML (20 MG/ML) ?INFUSE 7SOMG (9MG/91 KG) BY INTRAVENOUS ROUTE EVERY 4 WEEKS OVER NOT TO EXCEED ?8OO MG PER INFUSION
     Route: 042
     Dates: start: 201811
  2. ACTEMRA [Suspect]
     Active Substance: TOCILIZUMAB
     Indication: Uveitis
  3. CELLCEPT [Suspect]
     Active Substance: MYCOPHENOLATE MOFETIL
     Indication: Uveitis
     Dates: start: 201205, end: 201207
  4. Travatan Z 0.004 % eye drops [Concomitant]
     Dosage: INSTILL 1 DROP BY OPHTHALMIC ROUTE EVERY DAY THE LEFT EYE AT BEDTIME
     Route: 047
     Dates: start: 20250822
  5. TIMOLOL MALEATE [Concomitant]
     Active Substance: TIMOLOL MALEATE
     Dosage: INSTILL 1 DROP IN THE LEFT EYE ONCE DAILY
     Route: 047
     Dates: start: 20250512
  6. Retisert 0.59 mg intravitreal implant [Concomitant]
     Dosage: SURGICAL IMPLANT INTO THE AFFECTED EYE
  7. Prolensa 0.07 % eye drops [Concomitant]
     Dosage: INSTILL 1 BY OPHTHALMIC ROUTE 2 TIMES EVERY DAY BOTH EYES
     Route: 047
     Dates: start: 20241024
  8. Claritin 10 mg tablet [Concomitant]
     Route: 048
     Dates: start: 20190125
  9. Alrex 0.2 % eye drops,suspension [Concomitant]
     Dosage: INSTILL DROP BY OPHTHALMIC ROUTE 2 TIMES EVERY DAY INTO AFFECTED EYE(S) AS NEEDED
     Route: 047
     Dates: start: 20231027
  10. METHOTREXATE [Concomitant]
     Active Substance: METHOTREXATE

REACTIONS (5)
  - Off label use [Unknown]
  - Infection [Unknown]
  - Leukopenia [Unknown]
  - Vitreous floaters [Not Recovered/Not Resolved]
  - Retinal vasculitis [Recovering/Resolving]
